FAERS Safety Report 7985038-X (Version None)
Quarter: 2011Q4

REPORT INFORMATION
  Report Type: 
  Country: None (occurrence: None)
  Receive Date: 20111216
  Receipt Date: 20111208
  Transmission Date: 20120403
  Serious: Yes (Other)
  Sender: FDA-Public Use
  Company Number: DE-NAPPMUNDI-DEU-2011-0008082

PATIENT
  Sex: Female
  Weight: 62 kg

DRUGS (5)
  1. ACTONEL [Concomitant]
     Dosage: 35 MG, WEEKLY
  2. BUPRENORPHINE HCL [Suspect]
     Indication: PRODUCT USED FOR UNKNOWN INDICATION
     Dosage: 5 MCG, Q1H
     Route: 062
     Dates: start: 20111017, end: 20111025
  3. NOVAMIN                            /00013301/ [Concomitant]
     Dosage: UNK
     Route: 048
  4. METFORMIN HCL [Concomitant]
     Dosage: 500 UNK, DAILY
     Route: 048
  5. PANTOZOL                           /01263204/ [Concomitant]
     Dosage: 40 UNK, UNK
     Route: 048

REACTIONS (3)
  - ATRIAL FLUTTER [None]
  - TACHYCARDIA [None]
  - PALPITATIONS [None]
